FAERS Safety Report 16564465 (Version 1)
Quarter: 2019Q3

REPORT INFORMATION
  Report Type: Spontaneous
  Country: US (occurrence: US)
  Receive Date: 20190712
  Receipt Date: 20190712
  Transmission Date: 20191004
  Serious: No
  Sender: FDA-Public Use
  Company Number: US-DRREDDYS-USA/USA/19/0111907

PATIENT
  Age: 55 Year
  Sex: Female

DRUGS (2)
  1. MINOCYCLINE HYDROCHLORIDE. [Suspect]
     Active Substance: MINOCYCLINE HYDROCHLORIDE
     Indication: ROSACEA
     Dosage: SINCE LAST FOUR YEARS
     Route: 065
  2. MINOCYCLINE HYDROCHLORIDE. [Suspect]
     Active Substance: MINOCYCLINE HYDROCHLORIDE
     Indication: ACNE

REACTIONS (2)
  - Skin hyperpigmentation [Unknown]
  - Conjunctival pigmentation [Unknown]
